FAERS Safety Report 8376021-3 (Version None)
Quarter: 2012Q2

REPORT INFORMATION
  Report Type: 
  Country: None (occurrence: None)
  Receive Date: 20120522
  Receipt Date: 20120516
  Transmission Date: 20120825
  Serious: Yes (Other)
  Sender: FDA-Public Use
  Company Number: PHEH2012US006446

PATIENT
  Sex: Female

DRUGS (2)
  1. TEGRETOL [Suspect]
     Indication: CONVULSION
     Dosage: 2 DF, UNK
  2. TEGRETOL-XR [Suspect]
     Indication: CONVULSION
     Dosage: 2 DF, UNK

REACTIONS (29)
  - ABASIA [None]
  - DECREASED APPETITE [None]
  - BLOOD PRESSURE INCREASED [None]
  - HEADACHE [None]
  - DRY MOUTH [None]
  - LIMB INJURY [None]
  - CONFUSIONAL STATE [None]
  - DIZZINESS [None]
  - FATIGUE [None]
  - POSTURE ABNORMAL [None]
  - WHITE BLOOD CELL COUNT INCREASED [None]
  - OROPHARYNGEAL PAIN [None]
  - SOMNOLENCE [None]
  - IRRITABILITY [None]
  - FALL [None]
  - CONVULSION [None]
  - NEUTROPHIL PERCENTAGE INCREASED [None]
  - VISION BLURRED [None]
  - NEUTROPHIL COUNT INCREASED [None]
  - LYMPHOCYTE PERCENTAGE DECREASED [None]
  - NAUSEA [None]
  - EYE INJURY [None]
  - LOSS OF CONTROL OF LEGS [None]
  - DRUG DISPENSING ERROR [None]
  - SCRATCH [None]
  - GAIT DISTURBANCE [None]
  - DYSPNOEA [None]
  - RASH [None]
  - MYALGIA [None]
